FAERS Safety Report 17875349 (Version 1)
Quarter: 2020Q2

REPORT INFORMATION
  Report Type: Spontaneous
  Country: US (occurrence: US)
  Receive Date: 20200608
  Receipt Date: 20200608
  Transmission Date: 20200714
  Serious: Yes (Hospitalization)
  Sender: FDA-Public Use
  Company Number: None

PATIENT
  Age: 76 Year
  Sex: Male
  Weight: 89 kg

DRUGS (2)
  1. ASPIRIN 81 MG [Suspect]
     Active Substance: ASPIRIN
     Indication: VASCULAR OPERATION
     Route: 048
     Dates: start: 20170614
  2. WARFARIN (WARFARIN NA (EXELAN) 5MG TAB) [Suspect]
     Active Substance: WARFARIN SODIUM
     Indication: ATRIAL FIBRILLATION
     Route: 048
     Dates: start: 20081121, end: 20191213

REACTIONS (10)
  - Chest pain [None]
  - Gastrointestinal haemorrhage [None]
  - Faeces discoloured [None]
  - Gastric haemorrhage [None]
  - Abdominal pain [None]
  - Therapy interrupted [None]
  - Anaemia [None]
  - Diarrhoea [None]
  - Haemoglobin decreased [None]
  - Hypotension [None]

NARRATIVE: CASE EVENT DATE: 20190912
